FAERS Safety Report 24250724 (Version 1)
Quarter: 2024Q3

REPORT INFORMATION
  Report Type: Spontaneous
  Country: US (occurrence: US)
  Receive Date: 20240826
  Receipt Date: 20240826
  Transmission Date: 20241016
  Serious: No
  Sender: MEDEXUS PHARMA
  Company Number: US-MEDEXUS PHARMA, INC.-2024MED00007

PATIENT
  Age: 47 Year
  Sex: Female

DRUGS (5)
  1. RASUVO [Suspect]
     Active Substance: METHOTREXATE SODIUM
     Indication: Arthritis
     Dosage: 15 MG, 1X/WEEK ON TUESDAYS
     Route: 065
     Dates: start: 202309, end: 2023
  2. RASUVO [Suspect]
     Active Substance: METHOTREXATE SODIUM
     Indication: Arthritis
     Dosage: 20 MG INJECTED ON BELLY, 1X/WEEK ON TUESDAYS
     Route: 065
     Dates: start: 2023
  3. FOLIC ACID [Concomitant]
     Active Substance: FOLIC ACID
  4. MELOXICAM [Concomitant]
     Active Substance: MELOXICAM
  5. METOCLOPRAMIDE [Concomitant]
     Active Substance: METOCLOPRAMIDE

REACTIONS (5)
  - Scratch [Recovered/Resolved]
  - Injection site haemorrhage [Recovered/Resolved]
  - Off label use [Not Recovered/Not Resolved]
  - Device leakage [Recovered/Resolved]
  - Device malfunction [Recovered/Resolved]

NARRATIVE: CASE EVENT DATE: 20230901
